FAERS Safety Report 18189717 (Version 3)
Quarter: 2020Q4

REPORT INFORMATION
  Report Type: Report from Study
  Country: None (occurrence: US)
  Receive Date: 20200825
  Receipt Date: 20201222
  Transmission Date: 20210113
  Serious: Yes (Hospitalization)
  Sender: FDA-Public Use
  Company Number: US-ABBVIE-20K-163-3534536-00

PATIENT
  Age: 62 Year
  Sex: Female
  Weight: 81.72 kg

DRUGS (2)
  1. SKYRIZI [Suspect]
     Active Substance: RISANKIZUMAB-RZAA
     Route: 058
     Dates: start: 202008
  2. SKYRIZI [Suspect]
     Active Substance: RISANKIZUMAB-RZAA
     Indication: PSORIASIS
     Route: 058
     Dates: start: 2019, end: 202008

REACTIONS (6)
  - Appendicitis perforated [Recovered/Resolved]
  - Abdominal abscess [Recovered/Resolved]
  - Painful respiration [Unknown]
  - Abdominal pain [Recovered/Resolved]
  - Chest pain [Unknown]
  - Infection [Recovered/Resolved]

NARRATIVE: CASE EVENT DATE: 202008
